FAERS Safety Report 13247792 (Version 1)
Quarter: 2017Q1

REPORT INFORMATION
  Report Type: Spontaneous
  Country: US (occurrence: US)
  Receive Date: 20170217
  Receipt Date: 20170217
  Transmission Date: 20170428
  Serious: Yes (Life-Threatening, Hospitalization, Other)
  Sender: FDA-Public Use
  Company Number: US-ELI_LILLY_AND_COMPANY-US201702006753

PATIENT
  Sex: Female

DRUGS (9)
  1. HUMALOG [Suspect]
     Active Substance: INSULIN LISPRO
     Indication: TYPE 1 DIABETES MELLITUS
     Dosage: UNK, PRN
     Route: 065
     Dates: start: 1992
  2. PRADAXA [Concomitant]
     Active Substance: DABIGATRAN ETEXILATE MESYLATE
  3. URSODIOL. [Concomitant]
     Active Substance: URSODIOL
  4. NOVOLOG [Concomitant]
     Active Substance: INSULIN ASPART
     Indication: TYPE 1 DIABETES MELLITUS
     Dosage: UNK, UNKNOWN
     Route: 065
     Dates: start: 1992
  5. TRAMADOL. [Concomitant]
     Active Substance: TRAMADOL
  6. MONTELUCAST [Concomitant]
     Active Substance: MONTELUKAST SODIUM
  7. FAMOTIDINE. [Concomitant]
     Active Substance: FAMOTIDINE
  8. LEVOTHYROXINE. [Concomitant]
     Active Substance: LEVOTHYROXINE
  9. BENZONATATE. [Concomitant]
     Active Substance: BENZONATATE

REACTIONS (9)
  - Anti-insulin antibody [Unknown]
  - Phantom pain [Unknown]
  - Soft tissue disorder [Unknown]
  - Cardiac failure congestive [Recovered/Resolved]
  - Cardiac arrest [Recovered/Resolved]
  - Cough [Unknown]
  - Factor V Leiden carrier [Unknown]
  - Thrombosis [Recovered/Resolved]
  - Diabetic gangrene [Not Recovered/Not Resolved]

NARRATIVE: CASE EVENT DATE: 2005
